APPROVED DRUG PRODUCT: OBETICHOLIC ACID
Active Ingredient: OBETICHOLIC ACID
Strength: 10MG
Dosage Form/Route: TABLET;ORAL
Application: A214980 | Product #002
Applicant: LUPIN LTD
Approved: May 30, 2023 | RLD: No | RS: No | Type: DISCN